FAERS Safety Report 20308401 (Version 1)
Quarter: 2022Q1

REPORT INFORMATION
  Report Type: Spontaneous
  Country: FR (occurrence: FR)
  Receive Date: 20220107
  Receipt Date: 20220107
  Transmission Date: 20220424
  Serious: Yes (Other)
  Sender: FDA-Public Use
  Company Number: None

PATIENT
  Age: 37 Year
  Sex: Male

DRUGS (3)
  1. PREGABALIN [Suspect]
     Active Substance: PREGABALIN
     Indication: Product used for unknown indication
     Dosage: UNKNOWN
     Route: 065
     Dates: start: 20211114, end: 20211114
  2. COCAINE [Suspect]
     Active Substance: COCAINE
     Dosage: UNKNOWN
     Route: 065
     Dates: start: 20211114, end: 20211114
  3. ALCOHOL [Suspect]
     Active Substance: ALCOHOL
     Dosage: UNKNOWN
     Route: 048
     Dates: start: 20211114, end: 20211114

REACTIONS (5)
  - Suicidal ideation [Not Recovered/Not Resolved]
  - Stab wound [Not Recovered/Not Resolved]
  - Drug abuse [Not Recovered/Not Resolved]
  - Multiple injuries [Not Recovered/Not Resolved]
  - Agitation [Not Recovered/Not Resolved]

NARRATIVE: CASE EVENT DATE: 20211115
